FAERS Safety Report 4600667-9 (Version None)
Quarter: 2005Q1

REPORT INFORMATION
  Report Type: 
  Country: None (occurrence: None)
  Receive Date: 20050304
  Receipt Date: 20050223
  Transmission Date: 20050727
  Serious: Yes (Hospitalization)
  Sender: FDA-Public Use
  Company Number: CAR 2005-003

PATIENT
  Age: 73 Year
  Sex: Male

DRUGS (6)
  1. SUCRALFATE [Suspect]
     Indication: GASTRITIS
     Dosage: 1 G 3 TIMES A DAY
     Route: 048
     Dates: start: 20040309, end: 20040310
  2. SUCRALFATE [Suspect]
     Indication: NASOPHARYNGITIS
     Dosage: 1 G 3 TIMES A DAY
     Route: 048
     Dates: start: 20040309, end: 20040310
  3. AMOBAN (ZOPICLONE) [Suspect]
     Indication: INSOMNIA
     Dosage: DOAGE FORM EVERY DAY
     Dates: start: 20040309, end: 20040309
  4. AMOXICILLIN [Suspect]
     Indication: GASTRITIS
     Dosage: 250 MG 3 TIMES A DAY
     Dates: start: 20040309, end: 20040310
  5. AMOXICILLIN [Suspect]
     Indication: NASOPHARYNGITIS
     Dosage: 250 MG 3 TIMES A DAY
     Dates: start: 20040309, end: 20040310
  6. EMPYNASE (PANCREATIN, PRONASE) [Concomitant]

REACTIONS (7)
  - DECREASED APPETITE [None]
  - JAUNDICE [None]
  - LIVER DISORDER [None]
  - LYMPHOCYTE STIMULATION TEST POSITIVE [None]
  - MALAISE [None]
  - NAUSEA [None]
  - PYREXIA [None]
